FAERS Safety Report 4334045-7 (Version None)
Quarter: 2004Q2

REPORT INFORMATION
  Report Type: 
  Country: None (occurrence: None)
  Receive Date: 20040402
  Receipt Date: 20040326
  Transmission Date: 20050107
  Serious: Yes (Life-Threatening)
  Sender: FDA-Public Use
  Company Number: 2004195440ES

PATIENT
  Age: 18 Year
  Sex: Female
  Weight: 60 kg

DRUGS (8)
  1. ZYVOXID (LINEZOLID) SOLUTION, STERILE [Suspect]
     Indication: OSTEOMYELITIS CHRONIC
     Dosage: 600 MG, BID, IV
     Route: 042
     Dates: start: 20031218, end: 20040117
  2. CEFTAZIDIME SODIUM [Suspect]
     Indication: OSTEOMYELITIS CHRONIC
     Dosage: 3 G, IV
     Route: 042
     Dates: start: 20031231, end: 20040117
  3. ENOXAPARIN SODIUM [Concomitant]
  4. ACETAMINOPHEN [Concomitant]
  5. DIPYRONE TAB [Concomitant]
  6. METOCLOPRAMIDE [Concomitant]
  7. OMEPRAZOLE [Concomitant]
  8. DICLOFENAC SODIUM [Concomitant]

REACTIONS (11)
  - ACTIVATED PARTIAL THROMBOPLASTIN TIME PROLONGED [None]
  - BONE GRAFT [None]
  - COMA [None]
  - DISSEMINATED INTRAVASCULAR COAGULATION [None]
  - HEADACHE [None]
  - HYPERTENSION [None]
  - HYPOTENSION [None]
  - PLATELET COUNT DECREASED [None]
  - RESPIRATORY DEPRESSION [None]
  - SHOCK [None]
  - SYSTEMIC MASTOCYTOSIS [None]
